FAERS Safety Report 14789380 (Version 2)
Quarter: 2018Q3

REPORT INFORMATION
  Report Type: Spontaneous
  Country: US (occurrence: US)
  Receive Date: 20180423
  Receipt Date: 20180814
  Transmission Date: 20181010
  Serious: Yes (Hospitalization, Other)
  Sender: FDA-Public Use
  Company Number: US-SUN PHARMACEUTICAL INDUSTRIES LTD-2018US-170720

PATIENT
  Age: 3 Year

DRUGS (2)
  1. LAMOTRIGINE. [Suspect]
     Active Substance: LAMOTRIGINE
     Indication: PRODUCT USED FOR UNKNOWN INDICATION
     Dosage: INGESTED 7?16 TABLET
     Route: 065
  2. CLONAZEPAM. [Suspect]
     Active Substance: CLONAZEPAM
     Indication: PRODUCT USED FOR UNKNOWN INDICATION
     Dosage: INGESTED 1?6 TABLET
     Route: 065

REACTIONS (5)
  - Generalised tonic-clonic seizure [Unknown]
  - Accidental exposure to product [Unknown]
  - Somnolence [Unknown]
  - Respiratory failure [Unknown]
  - Overdose [Unknown]
